FAERS Safety Report 8186285-7 (Version None)
Quarter: 2012Q1

REPORT INFORMATION
  Report Type: 
  Country: None (occurrence: None)
  Receive Date: 20120301
  Receipt Date: 20120220
  Transmission Date: 20120608
  Serious: Yes (Other)
  Sender: FDA-Public Use
  Company Number: AUR-APL-2011-04698

PATIENT
  Age: 47 Year
  Sex: Male

DRUGS (4)
  1. OMEPRAZOLE [Concomitant]
  2. FLUOXETINE [Suspect]
     Indication: OBSESSIVE-COMPULSIVE DISORDER
     Dosage: 40 MG (40 MG, 1 IN 1 D)
     Dates: start: 20090701
  3. CLOZAPINE [Suspect]
     Indication: SCHIZOPHRENIA
     Dosage: 600 MG (300 MG, 2 IN 1 D), ORAL
     Route: 048
     Dates: start: 20090728
  4. HYOSCINE HBR HYT [Concomitant]

REACTIONS (12)
  - BLOOD ALKALINE PHOSPHATASE INCREASED [None]
  - DECREASED APPETITE [None]
  - WEIGHT DECREASED [None]
  - PRODUCTIVE COUGH [None]
  - IMMUNODEFICIENCY [None]
  - COUGH [None]
  - DIARRHOEA [None]
  - HYPERHIDROSIS [None]
  - GAMMA-GLUTAMYLTRANSFERASE [None]
  - LETHARGY [None]
  - CONSTIPATION [None]
  - ABDOMINAL PAIN [None]
